FAERS Safety Report 12528466 (Version 2)
Quarter: 2016Q3

REPORT INFORMATION
  Report Type: Spontaneous
  Country: US (occurrence: US)
  Receive Date: 20160705
  Receipt Date: 20160825
  Transmission Date: 20161109
  Serious: Yes (Other)
  Sender: FDA-Public Use
  Company Number: US-DSJP-DSU-2016-122287

PATIENT

DRUGS (4)
  1. SAVAYSA [Suspect]
     Active Substance: EDOXABAN TOSYLATE
     Indication: ANTICOAGULANT THERAPY
     Dosage: 60 MG, QD
     Route: 048
     Dates: start: 201605
  2. LIDODERM [Concomitant]
     Active Substance: LIDOCAINE
     Indication: SCIATICA
     Dosage: UNK
     Dates: end: 201606
  3. ANTIHYPERTENSIVES [Concomitant]
     Active Substance: UNSPECIFIED INGREDIENT
     Indication: HYPERTENSION
     Dosage: UNK
  4. LIDOCAINE. [Suspect]
     Active Substance: LIDOCAINE
     Indication: SCIATICA
     Dosage: UNK
     Dates: start: 201606

REACTIONS (2)
  - Pain in extremity [Not Recovered/Not Resolved]
  - Back pain [Not Recovered/Not Resolved]

NARRATIVE: CASE EVENT DATE: 201606
